FAERS Safety Report 17123919 (Version 6)
Quarter: 2021Q2

REPORT INFORMATION
  Report Type: Spontaneous
  Country: BR (occurrence: BR)
  Receive Date: 20191206
  Receipt Date: 20210504
  Transmission Date: 20210716
  Serious: Yes (Other)
  Sender: FDA-Public Use
  Company Number: BR-BIOGEN-2018BI00585121

PATIENT
  Age: 60 Year
  Sex: Female
  Weight: 80 kg

DRUGS (9)
  1. AVONEX PEN [Suspect]
     Active Substance: INTERFERON BETA-1A
     Indication: MULTIPLE SCLEROSIS
     Route: 050
     Dates: start: 20120712
  2. HYDROCHLOROTHIAZIDE. [Concomitant]
     Active Substance: HYDROCHLOROTHIAZIDE
     Route: 065
  3. LOSARTAN. [Concomitant]
     Active Substance: LOSARTAN
     Indication: HYPERTENSION
     Route: 065
  4. AVONEX PEN [Suspect]
     Active Substance: INTERFERON BETA-1A
  5. AVONEX PEN [Suspect]
     Active Substance: INTERFERON BETA-1A
     Route: 030
     Dates: start: 20120712
  6. AVONEX PEN [Suspect]
     Active Substance: INTERFERON BETA-1A
     Route: 050
     Dates: start: 201707
  7. CAPTOPRIL. [Concomitant]
     Active Substance: CAPTOPRIL
     Route: 065
  8. HYDROCHLOROTHIAZIDE. [Concomitant]
     Active Substance: HYDROCHLOROTHIAZIDE
     Indication: HYPERTENSION
     Route: 065
  9. CAPTOPRIL. [Concomitant]
     Active Substance: CAPTOPRIL
     Indication: HYPERTENSION
     Route: 065

REACTIONS (24)
  - Influenza [Recovered/Resolved]
  - Peripheral swelling [Unknown]
  - Eye pain [Not Recovered/Not Resolved]
  - Malaise [Recovered/Resolved]
  - Spinal disorder [Unknown]
  - Back pain [Not Recovered/Not Resolved]
  - Mobility decreased [Recovered/Resolved]
  - Visual impairment [Not Recovered/Not Resolved]
  - Fatigue [Recovered/Resolved]
  - Insomnia [Not Recovered/Not Resolved]
  - Multiple sclerosis relapse [Recovered/Resolved with Sequelae]
  - Burning sensation [Not Recovered/Not Resolved]
  - Vision blurred [Not Recovered/Not Resolved]
  - Intervertebral disc protrusion [Not Recovered/Not Resolved]
  - Blood cholesterol increased [Not Recovered/Not Resolved]
  - Pain in extremity [Recovered/Resolved]
  - Pyrexia [Recovered/Resolved]
  - Joint swelling [Not Recovered/Not Resolved]
  - Hypokinesia [Recovered/Resolved]
  - Laboratory test abnormal [Unknown]
  - Gait disturbance [Unknown]
  - Musculoskeletal disorder [Recovered/Resolved]
  - Gait disturbance [Recovered/Resolved]
  - Movement disorder [Recovered/Resolved]

NARRATIVE: CASE EVENT DATE: 20120712
